FAERS Safety Report 9645617 (Version 1)
Quarter: 2013Q4

REPORT INFORMATION
  Report Type: Spontaneous
  Country: CH (occurrence: CH)
  Receive Date: 20131025
  Receipt Date: 20131025
  Transmission Date: 20140711
  Serious: Yes (Other)
  Sender: FDA-Public Use
  Company Number: CH-PFIZER INC-2013304362

PATIENT
  Sex: Female

DRUGS (5)
  1. NEURONTIN [Suspect]
     Indication: COMPLEX REGIONAL PAIN SYNDROME
     Dosage: 1600 MG (600 MG - 400 MG - 600 MG), DAILY
     Route: 064
     Dates: start: 2012
  2. LIORESAL ^NOVARTIS^ [Suspect]
     Indication: COMPLEX REGIONAL PAIN SYNDROME
     Dosage: 5 MG, 3X/DAY
     Route: 064
     Dates: start: 2012, end: 20121115
  3. IBUPROFEN [Suspect]
     Dosage: 600 MG, 1X/DAY
     Route: 064
     Dates: start: 2012
  4. DAFALGAN [Suspect]
     Dosage: 1 G, 3X/DAY
     Route: 064
     Dates: start: 2012
  5. FOLIC ACID [Concomitant]
     Dosage: UNK
     Route: 064
     Dates: start: 20121030

REACTIONS (2)
  - Maternal exposure during pregnancy [Unknown]
  - Foetal growth restriction [Unknown]
